FAERS Safety Report 10981880 (Version 2)
Quarter: 2015Q3

REPORT INFORMATION
  Report Type: Report from Study
  Country: US (occurrence: US)
  Receive Date: 20150402
  Receipt Date: 20150806
  Transmission Date: 20151125
  Serious: Yes (Other)
  Sender: FDA-Public Use
  Company Number: PHEH2014US022634

PATIENT
  Age: 46 Year
  Sex: Female
  Weight: 50.8 kg

DRUGS (19)
  1. GILENYA [Suspect]
     Active Substance: FINGOLIMOD HYDROCHLORIDE
     Indication: MULTIPLE SCLEROSIS
     Dosage: 0.5 MG, QD
     Route: 048
     Dates: start: 20141010
  2. SOMA [Concomitant]
     Active Substance: CARISOPRODOL
     Indication: PRODUCT USED FOR UNKNOWN INDICATION
     Dosage: 350 MG, 1 TAB AS NEEDED 4 TIIMES A DAY
     Route: 065
  3. AMITRIPTYLINE HCL [Concomitant]
     Active Substance: AMITRIPTYLINE
     Indication: MULTIPLE SCLEROSIS
     Dosage: 10 MG, QD, AT BEDTIME
     Route: 048
  4. KEPPRA [Concomitant]
     Active Substance: LEVETIRACETAM
     Indication: SEIZURE
     Dosage: 500 MG, QD (2 TAB IN AM AND 3 TAB IN PM)
     Route: 048
  5. LEXAPRO [Concomitant]
     Active Substance: ESCITALOPRAM OXALATE
     Indication: DEPRESSION
     Dosage: 10 MG, QD
     Route: 048
  6. HYDROCODONE [Concomitant]
     Active Substance: HYDROCODONE
     Indication: PRODUCT USED FOR UNKNOWN INDICATION
     Dosage: 7.5 MG, PRN (EVERY 6 HOURS)
     Route: 065
  7. LAMOTRIGINE. [Concomitant]
     Active Substance: LAMOTRIGINE
     Dosage: 4 DF, QD, 2 WEEKS
     Route: 065
  8. LAMOTRIGINE. [Concomitant]
     Active Substance: LAMOTRIGINE
     Dosage: 8 DF, QD
     Route: 065
  9. IBUPROFEN. [Concomitant]
     Active Substance: IBUPROFEN
     Indication: PRODUCT USED FOR UNKNOWN INDICATION
     Dosage: 200 MG, 1 TAB AS NEEDED EVERY 6 HOURS
     Route: 065
  10. LAMICTAL [Concomitant]
     Active Substance: LAMOTRIGINE
     Indication: SEIZURE
     Dosage: 200 MG, DAILY
     Route: 048
  11. ACETAMINOPHEN. [Concomitant]
     Active Substance: ACETAMINOPHEN
     Indication: PRODUCT USED FOR UNKNOWN INDICATION
     Dosage: 325 MG, PRN, EVERY 6 HOURS
     Route: 065
  12. LAMOTRIGINE. [Concomitant]
     Active Substance: LAMOTRIGINE
     Dosage: 2 DF, QD, 2 WEEKS
     Route: 065
  13. ATIVAN [Concomitant]
     Active Substance: LORAZEPAM
     Indication: PRODUCT USED FOR UNKNOWN INDICATION
     Dosage: 0.5 MG, 1 TAB AS NEEDED
     Route: 065
  14. GABAPENTIN. [Concomitant]
     Active Substance: GABAPENTIN
     Dosage: 2 DF, TID, DAILY
     Route: 048
  15. LAMOTRIGINE. [Concomitant]
     Active Substance: LAMOTRIGINE
     Dosage: 6 DF, QD, 2 WEEKS
     Route: 065
  16. GABAPENTIN. [Concomitant]
     Active Substance: GABAPENTIN
     Indication: SEIZURE
     Dosage: 1 DF, TID, 1 WEEK
     Route: 048
  17. LAMICTAL [Concomitant]
     Active Substance: LAMOTRIGINE
     Dosage: 25 MG, QD
     Route: 048
  18. LAMOTRIGINE. [Concomitant]
     Active Substance: LAMOTRIGINE
     Indication: PRODUCT USED FOR UNKNOWN INDICATION
     Dosage: 1 DF, QD, 2 WEEKS
     Route: 065
  19. FIORICET [Concomitant]
     Active Substance: ACETAMINOPHEN\BUTALBITAL\CAFFEINE
     Indication: PRODUCT USED FOR UNKNOWN INDICATION
     Dosage: 40 MG, (AS NEEDED EVERY 4 HOURS)
     Route: 065

REACTIONS (29)
  - Seizure [Unknown]
  - Malaise [Unknown]
  - Feeling abnormal [Unknown]
  - Prescribed underdose [Unknown]
  - Gait disturbance [Not Recovered/Not Resolved]
  - Insomnia [Not Recovered/Not Resolved]
  - Hypoacusis [Unknown]
  - Nausea [Unknown]
  - Visual impairment [Not Recovered/Not Resolved]
  - Decreased interest [Unknown]
  - Anxiety [Unknown]
  - Weight increased [Unknown]
  - Asthenia [Not Recovered/Not Resolved]
  - Central nervous system lesion [Unknown]
  - Bowel movement irregularity [Unknown]
  - Muscular weakness [Not Recovered/Not Resolved]
  - Tearfulness [Unknown]
  - Depression [Unknown]
  - Dizziness [Unknown]
  - Gastroenteritis viral [Unknown]
  - Diarrhoea [Recovered/Resolved]
  - Vomiting [Recovered/Resolved]
  - Abdominal pain upper [Recovered/Resolved]
  - Balance disorder [Unknown]
  - Somnolence [Unknown]
  - Pain in extremity [Unknown]
  - Memory impairment [Not Recovered/Not Resolved]
  - Dehydration [Unknown]
  - Off label use [Unknown]

NARRATIVE: CASE EVENT DATE: 20141010
